FAERS Safety Report 8288534-3 (Version None)
Quarter: 2012Q2

REPORT INFORMATION
  Report Type: 
  Country: None (occurrence: None)
  Receive Date: 20120416
  Receipt Date: 20120411
  Transmission Date: 20120825
  Serious: Yes (Death)
  Sender: FDA-Public Use
  Company Number: US-PFIZER INC-2012079836

PATIENT
  Sex: Female
  Weight: 58.503 kg

DRUGS (8)
  1. LISINOPRIL [Concomitant]
     Indication: HYPERTENSION
     Dosage: 20 MG, 1X/DAY
     Route: 048
     Dates: start: 20100601
  2. IBUPROFEN [Suspect]
     Indication: RHEUMATOID ARTHRITIS
     Dosage: 600 MG, 3X/DAY
     Route: 048
     Dates: start: 20110715, end: 20110829
  3. LANTUS [Concomitant]
     Indication: TYPE 2 DIABETES MELLITUS
     Dosage: 100 IU, 2X/DAY
     Route: 058
     Dates: start: 20010101
  4. LIOTHYRONINE SODIUM [Concomitant]
     Indication: HYPOTHYROIDISM
     Dosage: 5 UG, 1X/DAY
     Route: 048
     Dates: start: 20060101
  5. GABAPENTIN [Concomitant]
     Indication: OSTEOARTHRITIS
     Dosage: 300 MG, 3X/DAY
     Route: 048
     Dates: start: 20111115
  6. IBUPROFEN [Suspect]
     Indication: OSTEOARTHRITIS
  7. NOVOLOG [Concomitant]
     Indication: TYPE 2 DIABETES MELLITUS
     Dosage: 70/30 IU, 3X/DAY
     Route: 058
     Dates: start: 20010101
  8. NEXIUM [Concomitant]
     Indication: PROPHYLAXIS AGAINST GASTROINTESTINAL ULCER
     Dosage: 20 MG, 1X/DAY
     Route: 048
     Dates: start: 20110715, end: 20110829

REACTIONS (1)
  - ARTERIOSCLEROSIS CORONARY ARTERY [None]
